FAERS Safety Report 6910830-X (Version None)
Quarter: 2010Q3

REPORT INFORMATION
  Report Type: 
  Country: None (occurrence: None)
  Receive Date: 20100806
  Receipt Date: 20100715
  Transmission Date: 20110219
  Serious: Yes (Other)
  Sender: FDA-Public Use
  Company Number: US-GENZYME-CLOF-1001046

PATIENT
  Sex: Male

DRUGS (3)
  1. CLOLAR [Suspect]
     Indication: ACUTE MYELOID LEUKAEMIA
     Dosage: UNK UNK, UNK
     Route: 065
     Dates: start: 20100511, end: 20100515
  2. CLOLAR [Suspect]
     Dosage: UNK UNK, UNK
     Route: 065
     Dates: start: 20100618, end: 20100622
  3. CYTARABINE [Suspect]
     Indication: ACUTE MYELOID LEUKAEMIA
     Dosage: UNK UNK, UNK
     Route: 065
     Dates: start: 20100101

REACTIONS (1)
  - ACUTE MYELOID LEUKAEMIA RECURRENT [None]
